FAERS Safety Report 16658742 (Version 4)
Quarter: 2020Q1

REPORT INFORMATION
  Report Type: Spontaneous
  Country: AR (occurrence: AR)
  Receive Date: 20190801
  Receipt Date: 20200121
  Transmission Date: 20200409
  Serious: Yes (Death, Hospitalization, Other)
  Sender: FDA-Public Use
  Company Number: AR-B.I. PHARMACEUTICALS,INC./RIDGEFIELD-2019-BI-031990

PATIENT
  Age: 89 Year
  Sex: Female

DRUGS (1)
  1. PRADAXA [Suspect]
     Active Substance: DABIGATRAN ETEXILATE MESYLATE
     Indication: ATRIAL FIBRILLATION
     Route: 048
     Dates: start: 2016

REACTIONS (3)
  - Ovarian cancer [Fatal]
  - Acute abdomen [Unknown]
  - Metastases to abdominal cavity [Fatal]

NARRATIVE: CASE EVENT DATE: 20190726
